FAERS Safety Report 6930748-6 (Version None)
Quarter: 2010Q3

REPORT INFORMATION
  Report Type: 
  Country: None (occurrence: None)
  Receive Date: 20100818
  Receipt Date: 20100818
  Transmission Date: 20110219
  Serious: Yes (Other)
  Sender: FDA-Public Use
  Company Number: None

PATIENT
  Age: 73 Year
  Sex: Male
  Weight: 78.0187 kg

DRUGS (2)
  1. TAMSULOSIN HYDROCHLORIDE [Suspect]
     Indication: MICTURITION DISORDER
     Dosage: 1 CAPSULE DAILY PO
     Route: 048
     Dates: start: 20100529, end: 20100817
  2. TAMSULOSIN HYDROCHLORIDE [Suspect]
     Indication: PROSTATOMEGALY
     Dosage: 1 CAPSULE DAILY PO
     Route: 048
     Dates: start: 20100529, end: 20100817

REACTIONS (4)
  - DRUG EFFECT DECREASED [None]
  - PRODUCT MEASURED POTENCY ISSUE [None]
  - PRODUCT QUALITY ISSUE [None]
  - PRODUCT SUBSTITUTION ISSUE [None]
